FAERS Safety Report 21140053 (Version 1)
Quarter: 2022Q3

REPORT INFORMATION
  Report Type: Report from Study
  Country: CN (occurrence: CN)
  Receive Date: 20220728
  Receipt Date: 20220728
  Transmission Date: 20221027
  Serious: Yes (Other)
  Sender: FDA-Public Use
  Company Number: CN-SUN PHARMACEUTICAL INDUSTRIES LTD-2022R1-346010

PATIENT
  Sex: Male

DRUGS (2)
  1. QUININE [Suspect]
     Active Substance: QUININE
     Indication: Malaria
     Route: 065
  2. ARTEMETHER [Suspect]
     Active Substance: ARTEMETHER
     Indication: Malaria
     Dosage: 80 MILLIGRAM, QD
     Route: 042

REACTIONS (1)
  - Disease recurrence [Unknown]
